FAERS Safety Report 4981205-8 (Version None)
Quarter: 2006Q1

REPORT INFORMATION
  Report Type: 
  Country: None (occurrence: None)
  Receive Date: 20060227
  Receipt Date: 20050502
  Transmission Date: 20060701
  Serious: No
  Sender: FDA-Public Use
  Company Number: WAES 0505USA00321

PATIENT
  Age: 50 Year
  Sex: Male

DRUGS (1)
  1. PROPECIA [Suspect]
     Dates: start: 19980101

REACTIONS (2)
  - ALOPECIA [None]
  - THERAPEUTIC RESPONSE DECREASED [None]
